FAERS Safety Report 7331742-6 (Version None)
Quarter: 2011Q1

REPORT INFORMATION
  Report Type: 
  Country: None (occurrence: None)
  Receive Date: 20110304
  Receipt Date: 20110304
  Transmission Date: 20110831
  Serious: Yes (Death, Hospitalization)
  Sender: FDA-Public Use
  Company Number: PHHO2008DE12723

PATIENT
  Sex: Male
  Weight: 60 kg

DRUGS (6)
  1. RAD001 [Suspect]
     Dosage: 5 MG
     Route: 048
     Dates: start: 20080930, end: 20081014
  2. RAD001 [Suspect]
     Dosage: NO TREATMENT
     Dates: start: 20080925, end: 20080929
  3. SANDOSTATIN LAR [Suspect]
     Indication: CARCINOID SYNDROME
     Dosage: DOUBLE BLIND
     Route: 030
     Dates: start: 20081006, end: 20081006
  4. RAD001 [Suspect]
     Indication: CARCINOID TUMOUR
     Dosage: 10 MG
     Route: 048
     Dates: start: 20080905, end: 20080924
  5. PLACEBO [Suspect]
     Indication: CARCINOID TUMOUR
     Dosage: PLACEBO
     Route: 048
     Dates: start: 20070913, end: 20080827
  6. RAD001 [Suspect]
     Dosage: NO TREATMENT
     Dates: start: 20081015

REACTIONS (8)
  - METASTASES TO LIVER [None]
  - GENERAL PHYSICAL HEALTH DETERIORATION [None]
  - SURGERY [None]
  - PNEUMONIA [None]
  - DUODENAL STENOSIS [None]
  - HEPATOMEGALY [None]
  - VOMITING [None]
  - NEOPLASM MALIGNANT [None]
